FAERS Safety Report 22615523 (Version 1)
Quarter: 2023Q2

REPORT INFORMATION
  Report Type: Spontaneous
  Country: US (occurrence: US)
  Receive Date: 20230619
  Receipt Date: 20230619
  Transmission Date: 20230721
  Serious: Yes (Other)
  Sender: FDA-Public Use
  Company Number: US-PFIZER INC-PV202200089039

PATIENT
  Age: 65 Year
  Sex: Male

DRUGS (1)
  1. RETACRIT [Suspect]
     Active Substance: EPOETIN ALFA-EPBX
     Dosage: 60000 IU, WEEKLY (40,000 UNIT WEEKLY TOGETHER WITH 10000 UNIT)
     Route: 058

REACTIONS (8)
  - Nephrogenic anaemia [Unknown]
  - Atrial fibrillation [Unknown]
  - Microcytic anaemia [Unknown]
  - Chronic obstructive pulmonary disease [Unknown]
  - Iron deficiency anaemia [Unknown]
  - Obesity [Unknown]
  - Sleep apnoea syndrome [Unknown]
  - Product prescribing error [Unknown]
